FAERS Safety Report 6449120-0 (Version None)
Quarter: 2009Q4

REPORT INFORMATION
  Report Type: 
  Country: None (occurrence: None)
  Receive Date: 20091120
  Receipt Date: 20091109
  Transmission Date: 20100525
  Serious: Yes (Hospitalization)
  Sender: FDA-Public Use
  Company Number: US-ELI_LILLY_AND_COMPANY-US200910007447

PATIENT
  Sex: Male
  Weight: 38.5 kg

DRUGS (27)
  1. SOMATROPIN [Suspect]
     Dosage: 1 MG, DAILY (1/D)
     Route: 058
     Dates: start: 20000501
  2. ALBUTEROL [Concomitant]
     Indication: ASTHMA
     Dosage: UNK, AS NEEDED
  3. ASCORBIC ACID [Concomitant]
     Indication: PROPHYLAXIS
  4. CEPHALEXIN [Concomitant]
  5. CLONAZEPAM [Concomitant]
  6. DOCUSATE [Concomitant]
  7. FLONASE [Concomitant]
  8. INDOMETHACIN [Concomitant]
  9. IPRATROPIUM [Concomitant]
  10. LAMICTAL [Concomitant]
     Indication: CONVULSION
  11. LEUCOVORIN CALCIUM [Concomitant]
  12. KEPPRA [Concomitant]
     Indication: CONVULSION
  13. LEVOCARNITINE [Concomitant]
  14. LITHIUM [Concomitant]
     Indication: AGGRESSION
  15. METHYLPHENIDATE HCL [Concomitant]
     Indication: ABNORMAL BEHAVIOUR
  16. SINGULAIR [Concomitant]
  17. MULTI-VITAMIN [Concomitant]
  18. BACTROBAN [Concomitant]
  19. ACIDOPHILUS [Concomitant]
  20. CREATINE [Concomitant]
  21. SODIUM FLUORIDE [Concomitant]
  22. OLANZAPINE [Concomitant]
  23. PRILOSEC [Concomitant]
  24. OXYCODONE HCL [Concomitant]
     Indication: PAIN
  25. TOBRAMYCIN [Concomitant]
     Indication: EYE INFECTION
  26. COENZYME Q10 [Concomitant]
  27. VITAMIN E [Concomitant]

REACTIONS (1)
  - OSTEOMYELITIS [None]
